FAERS Safety Report 9324477 (Version 1)
Quarter: 2013Q2

REPORT INFORMATION
  Report Type: Spontaneous
  Country: CA (occurrence: CA)
  Receive Date: 20130603
  Receipt Date: 20130603
  Transmission Date: 20140414
  Serious: Yes (Hospitalization)
  Sender: FDA-Public Use
  Company Number: CA-B.I. PHARMACEUTICALS,INC./RIDGEFIELD-2013-CN-00993CN

PATIENT
  Age: 84 Year
  Sex: Female

DRUGS (7)
  1. PRADAXA [Suspect]
     Indication: CEREBROVASCULAR ACCIDENT PROPHYLAXIS
     Dosage: 220 MG
     Route: 048
     Dates: start: 2012
  2. PRADAXA [Suspect]
     Indication: ATRIAL FIBRILLATION
  3. ATORVASTATIN [Concomitant]
  4. ELTROXIN [Concomitant]
     Indication: THYROID DISORDER
     Dosage: 0.1 MG
  5. LOSARTAN [Concomitant]
     Indication: HYPERTENSION
  6. BISOPROLOL [Concomitant]
     Dosage: 2.5 MG
  7. DILTIAZEM [Concomitant]
     Dosage: 180 MG

REACTIONS (4)
  - Influenza [Recovered/Resolved]
  - Constipation [Not Recovered/Not Resolved]
  - Fatigue [Not Recovered/Not Resolved]
  - Haemorrhoids [Recovered/Resolved]
